FAERS Safety Report 4689595-0 (Version None)
Quarter: 2005Q2

REPORT INFORMATION
  Report Type: 
  Country: None (occurrence: None)
  Receive Date: 20050613
  Receipt Date: 20050613
  Transmission Date: 20051028
  Serious: Yes (Other)
  Sender: FDA-Public Use
  Company Number: None

PATIENT
  Sex: Female
  Weight: 56 kg

DRUGS (3)
  1. OXALIPLATIN [Suspect]
     Indication: COLON CANCER
     Dosage: 85 MG/M2 IV DAY 1
     Route: 042
     Dates: start: 20050330
  2. LEUCOVORIN [Suspect]
     Indication: COLON CANCER
     Dosage: 400 MG/M2 IV DAY 1
     Route: 042
     Dates: start: 20050330
  3. FLUOROURACIL [Suspect]
     Indication: COLON CANCER
     Dosage: 400 MG/M2 IV BOLUS DAY 1
     Route: 040
     Dates: start: 20050330

REACTIONS (2)
  - ABSCESS [None]
  - DIAPHRAGMATIC DISORDER [None]
